FAERS Safety Report 5683472-4 (Version None)
Quarter: 2008Q1

REPORT INFORMATION
  Report Type: 
  Country: None (occurrence: None)
  Receive Date: 20080326
  Receipt Date: 20080310
  Transmission Date: 20080703
  Serious: Yes (Hospitalization)
  Sender: FDA-Public Use
  Company Number: 2008US000654

PATIENT
  Age: 37 Year
  Sex: Male
  Weight: 88.4 kg

DRUGS (5)
  1. AMEVIVE [Suspect]
     Indication: PSORIASIS
     Dosage: 15 MG, WEEKLY, INTRAMUSCULAR
     Route: 030
     Dates: start: 20040106, end: 20040325
  2. DOVONEX (CALCIPOTRIOL) CREAM [Concomitant]
  3. TRIAMCINOLONE CREAM 0.1% [Concomitant]
  4. METHOTREXATE [Concomitant]
  5. RAPTIVA [Concomitant]

REACTIONS (2)
  - DRUG INEFFECTIVE [None]
  - URETHRAL STENOSIS [None]
